FAERS Safety Report 12827245 (Version 1)
Quarter: 2016Q4

REPORT INFORMATION
  Report Type: Spontaneous
  Country: US (occurrence: US)
  Receive Date: 20161007
  Receipt Date: 20161007
  Transmission Date: 20170207
  Serious: Yes (Other)
  Sender: FDA-Public Use
  Company Number: US-TEVA-699376ACC

PATIENT
  Age: 33 Year
  Sex: Female
  Weight: 80.36 kg

DRUGS (1)
  1. PARAGARD T 380A [Suspect]
     Active Substance: COPPER
     Indication: CONTRACEPTION
     Dates: start: 20150710

REACTIONS (6)
  - Device dislocation [Not Recovered/Not Resolved]
  - Pelvic fluid collection [Unknown]
  - Haemorrhagic ovarian cyst [Unknown]
  - Pain [Unknown]
  - Ovarian germ cell teratoma benign [Unknown]
  - Vaginal haemorrhage [Unknown]

NARRATIVE: CASE EVENT DATE: 20160907
